FAERS Safety Report 9917766 (Version 1)
Quarter: 2014Q1

REPORT INFORMATION
  Report Type: Spontaneous
  Country: JP (occurrence: JP)
  Receive Date: 20140221
  Receipt Date: 20140221
  Transmission Date: 20141002
  Serious: Yes (Hospitalization)
  Sender: FDA-Public Use
  Company Number: JP-BAYER-2014-027878

PATIENT
  Age: 69 Year
  Sex: Male
  Weight: 65 kg

DRUGS (12)
  1. GLUCOBAY OD [Suspect]
     Indication: DIABETES MELLITUS
     Dosage: 100 MG, TID
     Route: 048
     Dates: start: 2004, end: 20121226
  2. CIPROXAN [Suspect]
     Dosage: UNK
     Route: 041
     Dates: start: 20121210, end: 20121220
  3. CALONAL [Concomitant]
     Indication: PNEUMONIA
     Dosage: UNK
     Route: 048
     Dates: start: 20121224
  4. ZOSYN [Concomitant]
     Indication: PNEUMONIA
     Dosage: 4.5 MG, TID
     Dates: start: 20121224, end: 20121225
  5. JANUVIA [Concomitant]
     Indication: DIABETES MELLITUS
     Dosage: 50 MG, QD
     Route: 048
     Dates: start: 20110930, end: 20121226
  6. ZYRTEC [Concomitant]
     Indication: SINUSITIS NONINFECTIVE
     Dosage: 10 MG, QD
     Route: 048
     Dates: start: 20120218, end: 20121226
  7. FLUNASE [Concomitant]
     Indication: SINUSITIS NONINFECTIVE
     Dosage: 1 PMOL/L, BID
     Route: 045
     Dates: start: 20091016
  8. SOLITA-T3 [Concomitant]
     Indication: PNEUMONIA
     Dosage: UNK
     Dates: start: 20121224, end: 20121228
  9. SPIRIVA [Concomitant]
     Indication: EMPHYSEMA
     Dosage: 1 PUFF(S), QD
     Route: 055
     Dates: start: 20060307
  10. SINGULAIR [Concomitant]
     Indication: EMPHYSEMA
     Dosage: 10 MG, QD
     Route: 048
     Dates: start: 20070228, end: 20121226
  11. HARNAL [Concomitant]
     Indication: BENIGN PROSTATIC HYPERPLASIA
     Dosage: 0.2 MG, QD
     Route: 048
     Dates: start: 20070117, end: 20121226
  12. ADOAIR [Concomitant]
     Indication: EMPHYSEMA
     Dosage: 1 PUFF(S), BID
     Route: 055
     Dates: start: 20100326

REACTIONS (2)
  - Pneumatosis intestinalis [Not Recovered/Not Resolved]
  - Pneumonia [Recovered/Resolved]
